FAERS Safety Report 8270553-4 (Version None)
Quarter: 2012Q2

REPORT INFORMATION
  Report Type: 
  Country: None (occurrence: None)
  Receive Date: 20120410
  Receipt Date: 20120406
  Transmission Date: 20120825
  Serious: Yes (Other)
  Sender: FDA-Public Use
  Company Number: US-BRISTOL-MYERS SQUIBB COMPANY-14199954

PATIENT
  Age: 81 Year
  Sex: Male

DRUGS (10)
  1. MYCOPHENOLATE MOFETIL (CELLCEPT) [Concomitant]
     Dates: start: 20071109
  2. ASPIRIN [Concomitant]
     Dates: start: 20070615
  3. BELATACEPT [Suspect]
     Indication: RENAL TRANSPLANT
     Route: 042
     Dates: start: 20060911
  4. NORVASC [Concomitant]
     Dosage: 10MG:9OC08-11APR10,5MG:12MAR-21APR;23AP-18MAY10;2.5MG;5MG,19MAY-11JU,5MGJUL10-19JA11
     Dates: start: 20070518, end: 20110119
  5. METOPROLOL TARTRATE [Concomitant]
     Dosage: 75 MG FROM 15SEP06-8OCT08,50MG FORM 9OCT08-20JUN10;50MG
     Dates: start: 20060915, end: 20100620
  6. SIMVASTATIN [Concomitant]
     Dates: start: 20060913
  7. PREDNISONE TAB [Concomitant]
     Dates: start: 20061016
  8. NEXIUM [Concomitant]
     Dates: start: 20070815
  9. BENADRYL [Concomitant]
     Dates: start: 20081223, end: 20090101
  10. MULTI-VITAMIN [Concomitant]
     Dosage: 1 DF = 1 TAB
     Dates: start: 20070615

REACTIONS (2)
  - BASAL CELL CARCINOMA [None]
  - SQUAMOUS CELL CARCINOMA OF SKIN [None]
